FAERS Safety Report 4839846-4 (Version None)
Quarter: 2005Q4

REPORT INFORMATION
  Report Type: 
  Country: None (occurrence: None)
  Receive Date: 20051125
  Receipt Date: 20051114
  Transmission Date: 20060501
  Serious: Yes (Hospitalization)
  Sender: FDA-Public Use
  Company Number: HQWYE546114NOV05

PATIENT
  Age: 48 Year
  Sex: Male

DRUGS (4)
  1. AMIODARONE HCL [Suspect]
     Indication: VENTRICULAR TACHYCARDIA
     Dosage: 100 MG 1X PER 1 DAY
     Route: 048
     Dates: start: 20030709, end: 20050616
  2. MICARDIS [Concomitant]
  3. SUNRYTHM (PILSICAINIDE HYDROCHLORIDE) [Concomitant]
  4. ADALAT [Concomitant]

REACTIONS (5)
  - ELECTROCARDIOGRAM QRS COMPLEX PROLONGED [None]
  - HYPERTHYROIDISM [None]
  - PALPITATIONS [None]
  - THYROIDITIS [None]
  - VENTRICULAR TACHYCARDIA [None]
